FAERS Safety Report 23905529 (Version 1)
Quarter: 2024Q2

REPORT INFORMATION
  Report Type: Spontaneous
  Country: JP (occurrence: JP)
  Receive Date: 20240527
  Receipt Date: 20240527
  Transmission Date: 20240716
  Serious: Yes (Other)
  Sender: FDA-Public Use
  Company Number: JP-JNJFOC-20240548223

PATIENT
  Age: 5 Decade
  Sex: Male

DRUGS (4)
  1. TOPIRAMATE [Suspect]
     Active Substance: TOPIRAMATE
     Indication: Epilepsy
     Route: 048
  2. ZONISAMIDE [Suspect]
     Active Substance: ZONISAMIDE
     Indication: Epilepsy
     Route: 065
  3. PERAMPANEL [Suspect]
     Active Substance: PERAMPANEL
     Indication: Epilepsy
     Route: 065
  4. LEVETIRACETAM [Concomitant]
     Active Substance: LEVETIRACETAM

REACTIONS (2)
  - Nephrolithiasis [Unknown]
  - Mental disorder [Unknown]
